FAERS Safety Report 25435547 (Version 2)
Quarter: 2025Q3

REPORT INFORMATION
  Report Type: Spontaneous
  Country: TH (occurrence: TH)
  Receive Date: 20250613
  Receipt Date: 20250909
  Transmission Date: 20251020
  Serious: No
  Sender: MYLAN
  Company Number: TH-MYLANLABS-2025M1049466

PATIENT

DRUGS (1)
  1. EPINEPHRINE [Suspect]
     Active Substance: EPINEPHRINE
     Indication: Product used for unknown indication

REACTIONS (2)
  - Needle issue [Unknown]
  - Product quality issue [Unknown]
